FAERS Safety Report 18310761 (Version 1)
Quarter: 2020Q3

REPORT INFORMATION
  Report Type: Report from Study
  Country: MX (occurrence: MX)
  Receive Date: 20200925
  Receipt Date: 20200925
  Transmission Date: 20201103
  Serious: Yes (Death)
  Sender: FDA-Public Use
  Company Number: MX-BEH-2020122932

PATIENT

DRUGS (2)
  1. ALBUMIN HUMAN (GENERIC) [Suspect]
     Active Substance: ALBUMIN HUMAN
     Indication: HEPATORENAL SYNDROME
     Route: 065
  2. GLYVERASE [Suspect]
     Active Substance: TERLIPRESSIN
     Indication: HEPATORENAL SYNDROME
     Route: 065

REACTIONS (1)
  - Therapy non-responder [Fatal]
